FAERS Safety Report 8786413 (Version 1)
Quarter: 2012Q4

REPORT INFORMATION
  Report Type: 
  Country: UY (occurrence: UY)
  Receive Date: 20120914
  Receipt Date: 20120914
  Transmission Date: 20130627
  Serious: Yes (Hospitalization)
  Sender: FDA-Public Use
  Company Number: UY-ROCHE-1108862

PATIENT
  Age: 45 Year
  Sex: Female
  Weight: 75 kg

DRUGS (2)
  1. HERCEPTIN [Suspect]
     Indication: BREAST CANCER
     Route: 065
     Dates: start: 20120510, end: 20120802
  2. DOCETAXEL [Concomitant]
     Indication: BREAST CANCER
     Route: 065
     Dates: start: 20120419, end: 20120621

REACTIONS (1)
  - Dermatomyositis [Recovering/Resolving]
